FAERS Safety Report 18479626 (Version 2)
Quarter: 2020Q4

REPORT INFORMATION
  Report Type: Spontaneous
  Country: JP (occurrence: JP)
  Receive Date: 20201109
  Receipt Date: 20201222
  Transmission Date: 20210114
  Serious: Yes (Hospitalization)
  Sender: FDA-Public Use
  Company Number: JP-MYLANLABS-2020M1092598

PATIENT
  Age: 48 Year
  Sex: Female

DRUGS (3)
  1. SALAZOSULFAPYRIDINE [Concomitant]
     Active Substance: SULFASALAZINE
     Indication: RHEUMATOID ARTHRITIS
     Route: 065
  2. PREDONINE [Suspect]
     Active Substance: PREDNISOLONE
     Indication: RHEUMATOID ARTHRITIS
     Route: 065
  3. METHOTREXATE. [Concomitant]
     Active Substance: METHOTREXATE
     Indication: RHEUMATOID ARTHRITIS
     Route: 065

REACTIONS (6)
  - Disease progression [Recovering/Resolving]
  - Cardiomegaly [Recovering/Resolving]
  - Cardiac failure [Recovering/Resolving]
  - Kidney congestion [Recovering/Resolving]
  - Takayasu^s arteritis [Recovering/Resolving]
  - Condition aggravated [Recovering/Resolving]
